FAERS Safety Report 4820028-7 (Version None)
Quarter: 2005Q4

REPORT INFORMATION
  Report Type: 
  Country: None (occurrence: None)
  Receive Date: 20051031
  Receipt Date: 20050823
  Transmission Date: 20060501
  Serious: No
  Sender: FDA-Public Use
  Company Number: 2005PV001159

PATIENT
  Age: 78 Year
  Sex: Female
  Weight: 113.3993 kg

DRUGS (3)
  1. SYMLIN [Suspect]
     Indication: DIABETES MELLITUS NON-INSULIN-DEPENDENT
     Dosage: 120 MCG;BID;SC
     Route: 058
     Dates: start: 20050701
  2. LANTUS [Concomitant]
  3. GLIPIZIDE [Concomitant]

REACTIONS (1)
  - DECREASED APPETITE [None]
